FAERS Safety Report 5783047-2 (Version None)
Quarter: 2008Q2

REPORT INFORMATION
  Report Type: 
  Country: None (occurrence: None)
  Receive Date: 20080624
  Receipt Date: 20080616
  Transmission Date: 20081010
  Serious: No
  Sender: FDA-Public Use
  Company Number: US-ASTRAZENECA-2007UW28845

PATIENT
  Age: 56 Year
  Sex: Female
  Weight: 78 kg

DRUGS (7)
  1. RHINOCORT [Suspect]
     Indication: BRONCHITIS
     Route: 045
  2. RHINOCORT [Suspect]
     Indication: SINUSITIS
     Route: 045
  3. RHINOCORT [Suspect]
     Indication: LARYNGITIS
     Route: 045
  4. ZYRTEC [Concomitant]
  5. DOXICILLIN [Concomitant]
  6. TUSSINEX [Concomitant]
     Indication: COUGH
  7. ALBUTEROL [Concomitant]
     Route: 055

REACTIONS (1)
  - LIMB INJURY [None]
